FAERS Safety Report 13819687 (Version 2)
Quarter: 2017Q3

REPORT INFORMATION
  Report Type: Report from Study
  Country: US (occurrence: US)
  Receive Date: 20170731
  Receipt Date: 20170921
  Transmission Date: 20171127
  Serious: Yes (Hospitalization, Other)
  Sender: FDA-Public Use
  Company Number: PHEH2017US023244

PATIENT
  Age: 74 Year
  Sex: Male
  Weight: 77.27 kg

DRUGS (1)
  1. ENTRESTO [Suspect]
     Active Substance: SACUBITRIL\VALSARTAN
     Indication: CARDIAC FAILURE CONGESTIVE
     Dosage: 1 DF (97 SACUBITRIL, 103 MG VALSARTAN), BID
     Route: 048
     Dates: start: 20170104

REACTIONS (3)
  - Renal failure [Unknown]
  - Hyperkalaemia [Recovered/Resolved]
  - Blood potassium increased [Unknown]

NARRATIVE: CASE EVENT DATE: 20170711
